FAERS Safety Report 5235244-2 (Version None)
Quarter: 2007Q1

REPORT INFORMATION
  Report Type: 
  Country: None (occurrence: None)
  Receive Date: 20061208
  Receipt Date: 20060711
  Transmission Date: 20070707
  Serious: Yes (Other)
  Sender: FDA-Public Use
  Company Number: 2006UW14242

PATIENT
  Age: 48 Year
  Sex: Male

DRUGS (3)
  1. CRESTOR [Suspect]
     Indication: BLOOD CHOLESTEROL INCREASED
     Dosage: 10 MG PO
     Route: 047
     Dates: start: 20060708
  2. COZAAR [Concomitant]
  3. DICLOFENAC SODIUM [Concomitant]

REACTIONS (2)
  - DIARRHOEA [None]
  - SOMNOLENCE [None]
